FAERS Safety Report 5330543-8 (Version None)
Quarter: 2007Q2

REPORT INFORMATION
  Report Type: 
  Country: None (occurrence: None)
  Receive Date: 20070521
  Receipt Date: 20070510
  Transmission Date: 20071010
  Serious: Yes (Other)
  Sender: FDA-Public Use
  Company Number: JP-PFIZER INC-2007038969

PATIENT
  Age: 87 Year
  Sex: Male

DRUGS (3)
  1. NORVASC [Suspect]
  2. DIOVAN [Concomitant]
  3. AMOBAN [Concomitant]

REACTIONS (3)
  - ECZEMA [None]
  - NASOPHARYNGITIS [None]
  - OEDEMA [None]
